FAERS Safety Report 18348603 (Version 1)
Quarter: 2020Q4

REPORT INFORMATION
  Report Type: Spontaneous
  Country: US (occurrence: US)
  Receive Date: 20201006
  Receipt Date: 20201006
  Transmission Date: 20210114
  Serious: No
  Sender: FDA-Public Use
  Company Number: US-DRREDDYS-USA/USA/20/0127427

PATIENT
  Sex: Female

DRUGS (4)
  1. ZIPRASIDONE. [Suspect]
     Active Substance: ZIPRASIDONE
     Indication: PRODUCT USED FOR UNKNOWN INDICATION
     Route: 048
  2. LAMOTRIGINE. [Suspect]
     Active Substance: LAMOTRIGINE
  3. LAMOTRIGINE. [Suspect]
     Active Substance: LAMOTRIGINE
  4. ZIPRASIDONE. [Suspect]
     Active Substance: ZIPRASIDONE
     Route: 048

REACTIONS (6)
  - Thinking abnormal [Unknown]
  - Drug ineffective [Unknown]
  - Product quality issue [Unknown]
  - Abnormal behaviour [Unknown]
  - Irritability [Unknown]
  - Weight increased [Unknown]
